FAERS Safety Report 11181407 (Version 2)
Quarter: 2015Q3

REPORT INFORMATION
  Report Type: Spontaneous
  Country: CA (occurrence: CA)
  Receive Date: 20150611
  Receipt Date: 20150908
  Transmission Date: 20151125
  Serious: Yes (Death, Life-Threatening, Hospitalization, Disabling, Other)
  Sender: FDA-Public Use
  Company Number: CA-GILEAD-2015-0157653

PATIENT
  Age: 52 Year
  Sex: Male
  Weight: 81.5 kg

DRUGS (16)
  1. NORFLOXACIN [Concomitant]
     Active Substance: NORFLOXACIN
  2. THIAMINE. [Concomitant]
     Active Substance: THIAMINE
  3. VITAMIN D                          /00107901/ [Concomitant]
     Active Substance: ERGOCALCIFEROL
  4. VITAMIN K                          /00854101/ [Concomitant]
  5. SALBUTAMOL [Concomitant]
     Active Substance: ALBUTEROL
  6. HARVONI [Suspect]
     Active Substance: LEDIPASVIR\SOFOSBUVIR
     Indication: HEPATITIS C
     Dosage: 1 DF, QD
     Route: 048
     Dates: start: 20150226, end: 201506
  7. FUROSEMIDE. [Concomitant]
     Active Substance: FUROSEMIDE
  8. K-DUR [Concomitant]
     Active Substance: POTASSIUM CHLORIDE
  9. HYDROXYZINE [Concomitant]
     Active Substance: HYDROXYZINE\HYDROXYZINE HYDROCHLORIDE
  10. VITAMIN B12 [Concomitant]
     Active Substance: CYANOCOBALAMIN
  11. FOLATE [Concomitant]
     Active Substance: FOLATE SODIUM
  12. AMILORIDE [Concomitant]
     Active Substance: AMILORIDE
  13. SYMBICORT [Concomitant]
     Active Substance: BUDESONIDE\FORMOTEROL FUMARATE DIHYDRATE
  14. VITAMINS WITH MINERALS [Concomitant]
     Active Substance: MINERALS\VITAMINS
  15. CIPROFLOXACIN. [Concomitant]
     Active Substance: CIPROFLOXACIN
     Indication: ANTIBIOTIC PROPHYLAXIS
  16. VITAMIN E [Concomitant]
     Active Substance: .ALPHA.-TOCOPHEROL

REACTIONS (2)
  - Hepatic cirrhosis [Fatal]
  - Hepatic encephalopathy [Fatal]

NARRATIVE: CASE EVENT DATE: 20150309
